FAERS Safety Report 19970257 (Version 1)
Quarter: 2021Q4

REPORT INFORMATION
  Report Type: Spontaneous
  Country: US (occurrence: US)
  Receive Date: 20211020
  Receipt Date: 20211020
  Transmission Date: 20220303
  Serious: No
  Sender: FDA-Public Use
  Company Number: US-GLAXOSMITHKLINE-USCH2021071322

PATIENT
  Age: 51 Year
  Sex: Female

DRUGS (2)
  1. ADVIL LIQUI-GELS [Suspect]
     Active Substance: IBUPROFEN
     Indication: Dysmenorrhoea
     Dosage: UNK
     Dates: start: 20210930, end: 20211005
  2. ADVIL LIQUI-GELS [Suspect]
     Active Substance: IBUPROFEN
     Indication: Headache

REACTIONS (1)
  - Drug ineffective [Recovered/Resolved]
